FAERS Safety Report 19164138 (Version 2)
Quarter: 2021Q2

REPORT INFORMATION
  Report Type: Spontaneous
  Country: US (occurrence: US)
  Receive Date: 20210421
  Receipt Date: 20210524
  Transmission Date: 20210717
  Serious: No
  Sender: FDA-Public Use
  Company Number: US-SA-2021SA127013

PATIENT
  Sex: Female

DRUGS (1)
  1. DUPIXENT [Suspect]
     Active Substance: DUPILUMAB
     Indication: DERMATITIS ATOPIC
     Dosage: DUPIXENT 200 MG/ 1.14 ML PFS 2^S 200 MG (1 SYRINGE) UNDER THE SKIN EVERY 2 WEEKS EXPIRATION DATE: 10
     Route: 058
     Dates: start: 202012

REACTIONS (8)
  - Skin weeping [Unknown]
  - Ocular hyperaemia [Unknown]
  - Erythema [Unknown]
  - Pruritus [Unknown]
  - Skin infection [Unknown]
  - Scab [Unknown]
  - Dry skin [Unknown]
  - Skin fissures [Unknown]
